FAERS Safety Report 7685884-6 (Version None)
Quarter: 2011Q3

REPORT INFORMATION
  Report Type: 
  Country: None (occurrence: None)
  Receive Date: 20110816
  Receipt Date: 20110803
  Transmission Date: 20111222
  Serious: Yes (Hospitalization)
  Sender: FDA-Public Use
  Company Number: DE-ROCHE-796814

PATIENT
  Sex: Male
  Weight: 79 kg

DRUGS (4)
  1. IRINOTECAN HCL [Suspect]
     Dosage: 2ND CYCLE, LAST ADMINISTRATION PRIOR TO THE EVENT ON 18-JUL-2011
     Route: 042
     Dates: start: 20110428
  2. LEUCOVORIN CALCIUM [Suspect]
     Dosage: 2ND CYCLE, LAST ADMINISTRATION PRIOR TO THE EVENT ON 18-JUL-2011
     Route: 042
     Dates: start: 20110428
  3. BEVACIZUMAB [Suspect]
     Dosage: 2ND CYCLE, LAST ADMINISTRATION PRIOR TO THE EVENT ON 18-JUL-2011
     Route: 042
     Dates: start: 20110428
  4. FLUOROURACIL [Suspect]
     Dosage: 2ND CYCLE, LAST ADMINISTRATION PRIOR TO THE EVENT ON 18-JUL-2011
     Route: 042
     Dates: start: 20110428

REACTIONS (1)
  - HOSPITALISATION [None]
